FAERS Safety Report 14301238 (Version 1)
Quarter: 2017Q4

REPORT INFORMATION
  Report Type: Spontaneous
  Country: PL (occurrence: PL)
  Receive Date: 20171219
  Receipt Date: 20171219
  Transmission Date: 20180321
  Serious: Yes (Hospitalization, Other)
  Sender: FDA-Public Use
  Company Number: PHHY2017PL180726

PATIENT

DRUGS (2)
  1. SANDOSTATIN LAR DEPOT [Suspect]
     Active Substance: OCTREOTIDE ACETATE
     Indication: CARCINOID SYNDROME
     Dosage: UNK
     Route: 065
     Dates: start: 20150128
  2. SANDOSTATIN LAR DEPOT [Suspect]
     Active Substance: OCTREOTIDE ACETATE
     Indication: NEUROENDOCRINE CARCINOMA

REACTIONS (20)
  - Glomerular filtration rate decreased [Unknown]
  - Pain [Unknown]
  - Carcinoid syndrome [Unknown]
  - Weight decreased [Unknown]
  - Atrial enlargement [Unknown]
  - Pruritus generalised [Unknown]
  - Gynaecomastia [Unknown]
  - Vestibular disorder [Unknown]
  - Platelet count decreased [Unknown]
  - Pruritus [Unknown]
  - Tricuspid valve incompetence [Unknown]
  - Abdominal pain [Unknown]
  - Flushing [Unknown]
  - Hot flush [Unknown]
  - Oedema peripheral [Unknown]
  - Hepatic lesion [Unknown]
  - Diarrhoea [Unknown]
  - Hepatomegaly [Unknown]
  - Asthenia [Unknown]
  - Dyspnoea exertional [Unknown]

NARRATIVE: CASE EVENT DATE: 201504
